FAERS Safety Report 6660510-3 (Version None)
Quarter: 2010Q1

REPORT INFORMATION
  Report Type: 
  Country: None (occurrence: None)
  Receive Date: 20100331
  Receipt Date: 20100322
  Transmission Date: 20100710
  Serious: Yes (Hospitalization)
  Sender: FDA-Public Use
  Company Number: AT-ASTRAZENECA-2010SE08121

PATIENT
  Age: 971 Month
  Sex: Female
  Weight: 74 kg

DRUGS (3)
  1. IRESSA [Suspect]
     Indication: LUNG NEOPLASM MALIGNANT
     Route: 048
     Dates: start: 20091210, end: 20100303
  2. NORVASC [Concomitant]
     Indication: HYPERTENSION
     Route: 048
  3. ENAC [Concomitant]
     Indication: HYPERTENSION
     Route: 048

REACTIONS (3)
  - ANAEMIA [None]
  - FULL BLOOD COUNT DECREASED [None]
  - INTESTINAL HAEMORRHAGE [None]
